FAERS Safety Report 4587924-X (Version None)
Quarter: 2005Q1

REPORT INFORMATION
  Report Type: 
  Country: None (occurrence: None)
  Receive Date: 20050215
  Receipt Date: 20050202
  Transmission Date: 20050727
  Serious: Yes (Life-Threatening)
  Sender: FDA-Public Use
  Company Number: 2004233364FR

PATIENT
  Age: 66 Year
  Sex: Female
  Weight: 62 kg

DRUGS (9)
  1. CELEBREX [Suspect]
     Indication: ILL-DEFINED DISORDER
     Dosage: 200 MG (200 MG, 1 D), ORAL
     Route: 048
     Dates: end: 20040624
  2. LEFLUNOMIDE [Suspect]
     Indication: ILL-DEFINED DISORDER
     Dosage: 20 MG (20 MG, 1 D), ORAL
     Route: 048
     Dates: start: 20040315
  3. PROPOFAN (CAFFEINE, CARBASALATE CALCIUM, CHLORPHENIRAMINE MALEATE, DEX [Concomitant]
  4. CLOPIDOGREL BISULFATE [Concomitant]
  5. PRAVASTATIN SODIUM [Concomitant]
  6. AMLODIPINE BESYLATE [Concomitant]
  7. FUROSEMIDE [Concomitant]
  8. RAMIPRIL [Concomitant]
  9. BISOPROLOL FUMARATE [Concomitant]

REACTIONS (4)
  - CONGESTIVE CARDIOMYOPATHY [None]
  - DYSPNOEA EXERTIONAL [None]
  - ELECTROCARDIOGRAM CHANGE [None]
  - VENTRICULAR HYPOKINESIA [None]
